FAERS Safety Report 5099793-2 (Version None)
Quarter: 2006Q3

REPORT INFORMATION
  Report Type: 
  Country: None (occurrence: None)
  Receive Date: 20060908
  Receipt Date: 20060828
  Transmission Date: 20061208
  Serious: Yes (Other)
  Sender: FDA-Public Use
  Company Number: US-BRISTOL-MYERS SQUIBB COMPANY-13494661

PATIENT
  Sex: Male

DRUGS (5)
  1. STAVUDINE [Suspect]
     Indication: HIV INFECTION
     Dates: start: 20000501, end: 20010101
  2. DIDANOSINE [Suspect]
     Indication: HIV INFECTION
     Dates: start: 20000501, end: 20010101
  3. INDINIVIR SULFATE [Suspect]
     Indication: HIV INFECTION
     Dates: start: 20000501, end: 20010101
  4. RITONAVIR [Suspect]
     Indication: HIV INFECTION
     Dates: start: 20000501, end: 20010101
  5. ATORVASTATIN CALCIUM [Concomitant]
     Dates: end: 20010101

REACTIONS (6)
  - BLOOD CHOLESTEROL INCREASED [None]
  - BLOOD GLUCOSE INCREASED [None]
  - BLOOD TRIGLYCERIDES INCREASED [None]
  - DRUG TOXICITY [None]
  - FATIGUE [None]
  - OSTEONECROSIS [None]
